FAERS Safety Report 21169294 (Version 5)
Quarter: 2022Q4

REPORT INFORMATION
  Report Type: Spontaneous
  Country: US (occurrence: US)
  Receive Date: 20220804
  Receipt Date: 20221018
  Transmission Date: 20230112
  Serious: Yes (Death, Other)
  Sender: FDA-Public Use
  Company Number: US-NOVARTISPH-NVSC2022US176072

PATIENT
  Age: 72 Year
  Sex: Male
  Weight: 72.2 kg

DRUGS (1)
  1. LUTATHERA [Suspect]
     Active Substance: LUTETIUM OXODOTREOTIDE LU-177
     Indication: Carcinoid tumour
     Dosage: 200 MG (EVERY 8 WEEK)
     Route: 042
     Dates: start: 20220701, end: 20220803

REACTIONS (3)
  - Death [Fatal]
  - Ill-defined disorder [Recovering/Resolving]
  - Full blood count decreased [Unknown]

NARRATIVE: CASE EVENT DATE: 20220803
